FAERS Safety Report 25522224 (Version 2)
Quarter: 2025Q3

REPORT INFORMATION
  Report Type: Report from Study
  Country: US (occurrence: US)
  Receive Date: 20250707
  Receipt Date: 20250729
  Transmission Date: 20251021
  Serious: Yes (Hospitalization, Other)
  Sender: ABBVIE
  Company Number: US-ABBVIE-6356386

PATIENT
  Age: 49 Year
  Sex: Female
  Weight: 77 kg

DRUGS (6)
  1. RINVOQ [Suspect]
     Active Substance: UPADACITINIB
     Indication: Rheumatoid arthritis
     Dosage: FORM STRENGTH :15 MILLIGRAM?LAST ADMIN DATE: 2025
     Route: 048
     Dates: start: 20250402
  2. RINVOQ [Suspect]
     Active Substance: UPADACITINIB
     Indication: Rheumatoid arthritis
     Dosage: FORM STRENGTH: 15 MILLIGRAM
     Route: 048
     Dates: start: 20250715
  3. ZORYVE [Concomitant]
     Active Substance: ROFLUMILAST
     Indication: Psoriasis
  4. OTEZLA [Concomitant]
     Active Substance: APREMILAST
     Indication: Psoriasis
  5. Spironolactone dc [Concomitant]
     Indication: Acne
  6. FLECAINIDE [Concomitant]
     Active Substance: FLECAINIDE
     Indication: Palpitations

REACTIONS (5)
  - Uterine leiomyoma [Recovered/Resolved]
  - Weight increased [Recovering/Resolving]
  - Procedural pain [Recovered/Resolved]
  - Abdominal distension [Recovered/Resolved]
  - Uterine cyst [Recovered/Resolved]

NARRATIVE: CASE EVENT DATE: 20250101
